FAERS Safety Report 5787455-5 (Version None)
Quarter: 2008Q2

REPORT INFORMATION
  Report Type: 
  Country: None (occurrence: None)
  Receive Date: 20080623
  Receipt Date: 20080623
  Transmission Date: 20081010
  Serious: No
  Sender: FDA-Public Use
  Company Number: None

PATIENT
  Sex: Male
  Weight: 89.4 kg

DRUGS (1)
  1. DAUNORUBICIN HCL [Suspect]
     Dosage: 291 MG
     Dates: end: 20040813

REACTIONS (3)
  - EJECTION FRACTION DECREASED [None]
  - VENTRICULAR DYSFUNCTION [None]
  - VENTRICULAR FAILURE [None]
